FAERS Safety Report 25734217 (Version 2)
Quarter: 2025Q4

REPORT INFORMATION
  Report Type: Spontaneous
  Country: EU (occurrence: EU)
  Receive Date: 20250828
  Receipt Date: 20251201
  Transmission Date: 20260118
  Serious: Yes (Other)
  Sender: AUROBINDO
  Company Number: EU-EMA-DD-20250811-7482689-082533

PATIENT
  Sex: Male
  Weight: 125 kg

DRUGS (24)
  1. SIMVASTATIN [Suspect]
     Active Substance: SIMVASTATIN
     Indication: Gout
     Dosage: 1 DOSAGE FORM, DAILY (1 DF, QD)
     Route: 065
  2. SIMVASTATIN [Suspect]
     Active Substance: SIMVASTATIN
     Indication: Type 2 diabetes mellitus
     Dosage: 40 MILLIGRAM, DAILY (40 MILLIGRAM, QD)
     Route: 065
  3. SIMVASTATIN [Suspect]
     Active Substance: SIMVASTATIN
     Indication: Hypertension
  4. SIMVASTATIN [Suspect]
     Active Substance: SIMVASTATIN
     Indication: Dyslipidaemia
  5. METFORMIN [Suspect]
     Active Substance: METFORMIN HYDROCHLORIDE
     Indication: Type 2 diabetes mellitus
     Dosage: 1000 MILLIGRAM, EVERY OTHER DAY (1 DF, BID)
  6. METFORMIN [Suspect]
     Active Substance: METFORMIN HYDROCHLORIDE
     Dosage: 2 GRAM, TWO TIMES A DAY (1 GRAM, BID)
  7. METFORMIN [Suspect]
     Active Substance: METFORMIN HYDROCHLORIDE
     Dosage: 1 GRAM, ONCE A DAY (1 G 1X1)
     Route: 065
  8. ALLOPURINOL [Suspect]
     Active Substance: ALLOPURINOL
     Indication: Gout
     Dosage: 1 DOSAGE FORM, DAILY (1 DF, QD)
     Route: 065
  9. ALLOPURINOL [Suspect]
     Active Substance: ALLOPURINOL
     Indication: Dyslipidaemia
     Dosage: 100 MILLIGRAM, DAILY (100 MILLIGRAM, QD)
     Route: 065
  10. ALLOPURINOL [Suspect]
     Active Substance: ALLOPURINOL
     Indication: Type 2 diabetes mellitus
  11. ALLOPURINOL [Suspect]
     Active Substance: ALLOPURINOL
     Indication: Hypertension
  12. ENALAPRIL [Suspect]
     Active Substance: ENALAPRIL
     Indication: Hypertension
     Dosage: 1 DOSAGE FORM, DAILY (1 DF, QD)
     Route: 065
  13. ENALAPRIL [Suspect]
     Active Substance: ENALAPRIL
     Indication: Gout
     Dosage: 20 MILLIGRAM, DAILY (20 MILLIGRAM, QD)
     Route: 065
  14. ENALAPRIL [Suspect]
     Active Substance: ENALAPRIL
     Indication: Type 2 diabetes mellitus
  15. ENALAPRIL [Suspect]
     Active Substance: ENALAPRIL
     Indication: Dyslipidaemia
  16. AMLODIPINE [Suspect]
     Active Substance: AMLODIPINE BESYLATE
     Indication: Hypertension
     Dosage: 1 DOSAGE FORM, DAILY (1 DF, QD)
     Route: 065
  17. AMLODIPINE [Suspect]
     Active Substance: AMLODIPINE BESYLATE
     Indication: Dyslipidaemia
     Dosage: 2 DOSAGE FORM, DAILY (1 DF, BID)
     Route: 065
  18. AMLODIPINE [Suspect]
     Active Substance: AMLODIPINE BESYLATE
     Indication: Gout
     Dosage: 10 MILLIGRAM, TWO TIMES A DAY (5 MILLIGRAM, BID)
     Route: 065
  19. AMLODIPINE [Suspect]
     Active Substance: AMLODIPINE BESYLATE
     Indication: Type 2 diabetes mellitus
     Dosage: 5 MILLIGRAM, ONCE A DAY (5 MILLIGRAM, QD)
     Route: 065
  20. SITAGLIPTIN [Concomitant]
     Active Substance: SITAGLIPTIN
     Indication: Product used for unknown indication
     Dosage: 10 MILLIGRAM, DAILY (10 MILLIGRAM, QD)
     Route: 065
  21. CANDESARTAN [Concomitant]
     Active Substance: CANDESARTAN
     Indication: Product used for unknown indication
     Dosage: 16 MILLIGRAM, DAILY (16 MILLIGRAM, QD)
     Route: 065
  22. DAPAGLIFLOZIN [Concomitant]
     Active Substance: DAPAGLIFLOZIN
     Indication: Product used for unknown indication
     Dosage: 10 MILLIGRAM, DAILY (10 MILLIGRAM, QD)
     Route: 065
  23. ETORICOXIB [Concomitant]
     Active Substance: ETORICOXIB
     Indication: Musculoskeletal pain
     Dosage: 60 MILLIGRAM (60 MG, PRN)
     Route: 065
  24. ORPHENADRINE [Concomitant]
     Active Substance: ORPHENADRINE
     Indication: Musculoskeletal pain
     Dosage: UNK (IN THE EVENING)
     Route: 065

REACTIONS (6)
  - Haematochezia [Recovered/Resolved]
  - Abdominal distension [Recovered/Resolved]
  - Diarrhoea [Recovered/Resolved]
  - Flatulence [Recovered/Resolved]
  - Haemorrhoids [Recovered/Resolved]
  - Faeces discoloured [Recovered/Resolved]
